FAERS Safety Report 4491652-9 (Version None)
Quarter: 2004Q4

REPORT INFORMATION
  Report Type: 
  Country: None (occurrence: None)
  Receive Date: 20041101
  Receipt Date: 20041019
  Transmission Date: 20050328
  Serious: Yes (Hospitalization)
  Sender: FDA-Public Use
  Company Number: HQWYE258324SEP04

PATIENT
  Age: 29 Year
  Sex: Female
  Weight: 44.04 kg

DRUGS (10)
  1. PROTONIX [Suspect]
     Indication: GASTROOESOPHAGEAL REFLUX DISEASE
     Dosage: 40 MG 2X PER 1 DAY, INTRAVENOUS
     Route: 042
     Dates: start: 20040201, end: 20040101
  2. PROTONIX [Suspect]
     Indication: INTESTINAL HYPOMOTILITY
     Dosage: 40 MG 2X PER 1 DAY, INTRAVENOUS
     Route: 042
     Dates: start: 20040201, end: 20040101
  3. PROTONIX [Suspect]
     Indication: GASTROOESOPHAGEAL REFLUX DISEASE
     Dosage: 40 MG 2X PER 1 DAY, INTRAVENOUS
     Route: 042
     Dates: start: 20040101
  4. PROTONIX [Suspect]
     Indication: INTESTINAL HYPOMOTILITY
     Dosage: 40 MG 2X PER 1 DAY, INTRAVENOUS
     Route: 042
     Dates: start: 20040101
  5. CANCIDAS [Concomitant]
  6. NEURONTIN [Concomitant]
  7. METHADONE [Concomitant]
  8. FILGRASTIM [Concomitant]
  9. EPOETIN ALFA [Concomitant]
  10. CLIMARA [Concomitant]

REACTIONS (17)
  - ABDOMINAL PAIN [None]
  - ATAXIA [None]
  - BLOOD CALCIUM DECREASED [None]
  - BLOOD MAGNESIUM DECREASED [None]
  - CONDITION AGGRAVATED [None]
  - DYSKINESIA [None]
  - DYSTONIA [None]
  - MENTAL DISORDER [None]
  - MOVEMENT DISORDER [None]
  - MUSCLE SPASMS [None]
  - MUSCLE TWITCHING [None]
  - MYALGIA [None]
  - PAIN [None]
  - PAIN IN EXTREMITY [None]
  - SOMNOLENCE [None]
  - TREMOR [None]
  - VOMITING [None]
